FAERS Safety Report 5608956-6 (Version None)
Quarter: 2008Q1

REPORT INFORMATION
  Report Type: 
  Country: None (occurrence: None)
  Receive Date: 20080129
  Receipt Date: 20080129
  Transmission Date: 20080703
  Serious: Yes (Other)
  Sender: FDA-Public Use
  Company Number: None

PATIENT
  Age: 55 Year
  Sex: Female
  Weight: 53.5244 kg

DRUGS (2)
  1. PROVIGIL [Suspect]
     Indication: FATIGUE
     Dosage: ONE TABLET DIVIDED IN TWO  HALF IN AM AND HAL   PO
     Route: 048
     Dates: start: 20060415, end: 20071227
  2. PROVIGIL [Suspect]
     Indication: SOMNOLENCE
     Dosage: ONE TABLET DIVIDED IN TWO  HALF IN AM AND HAL   PO
     Route: 048
     Dates: start: 20060415, end: 20071227

REACTIONS (5)
  - ANGER [None]
  - CONFUSIONAL STATE [None]
  - DEPRESSION [None]
  - IRRITABILITY [None]
  - SUICIDAL IDEATION [None]
